FAERS Safety Report 8485776-9 (Version None)
Quarter: 2012Q3

REPORT INFORMATION
  Report Type: 
  Country: None (occurrence: None)
  Receive Date: 20120703
  Receipt Date: 20120627
  Transmission Date: 20120928
  Serious: Yes (Death, Hospitalization)
  Sender: FDA-Public Use
  Company Number: US-PFIZER INC-2012088538

PATIENT
  Sex: Male
  Weight: 67 kg

DRUGS (1)
  1. DOXORUBICIN HCL [Suspect]
     Indication: SARCOMA
     Dosage: 102 MG (60 MG/M2), UNK
     Route: 042
     Dates: start: 20111018

REACTIONS (2)
  - URINARY TRACT INFECTION [None]
  - SEPSIS [None]
